FAERS Safety Report 19933374 (Version 2)
Quarter: 2022Q2

REPORT INFORMATION
  Report Type: Report from Study
  Country: US (occurrence: US)
  Receive Date: 20211008
  Receipt Date: 20220627
  Transmission Date: 20220721
  Serious: Yes (Hospitalization, Other)
  Sender: FDA-Public Use
  Company Number: US-TAKEDA-2021TUS061684

PATIENT
  Age: 71 Year
  Sex: Male

DRUGS (17)
  1. TEDUGLUTIDE [Suspect]
     Active Substance: TEDUGLUTIDE
     Indication: Short-bowel syndrome
     Dosage: 4.400 MILLIGRAM, QD
     Route: 042
     Dates: start: 20131028, end: 20190214
  2. TEDUGLUTIDE [Suspect]
     Active Substance: TEDUGLUTIDE
     Indication: Short-bowel syndrome
     Dosage: 4.400 MILLIGRAM, QD
     Route: 042
     Dates: start: 20131028, end: 20190214
  3. TEDUGLUTIDE [Suspect]
     Active Substance: TEDUGLUTIDE
     Indication: Short-bowel syndrome
     Dosage: 4.400 MILLIGRAM, QD
     Route: 042
     Dates: start: 20131028, end: 20190214
  4. TEDUGLUTIDE [Suspect]
     Active Substance: TEDUGLUTIDE
     Indication: Short-bowel syndrome
     Dosage: 4.400 MILLIGRAM, QD
     Route: 042
     Dates: start: 20131028, end: 20190214
  5. TEDUGLUTIDE [Suspect]
     Active Substance: TEDUGLUTIDE
     Dosage: 3.700 MILLIGRAM, QD
     Route: 042
     Dates: start: 20190215, end: 20190721
  6. TEDUGLUTIDE [Suspect]
     Active Substance: TEDUGLUTIDE
     Dosage: 3.700 MILLIGRAM, QD
     Route: 042
     Dates: start: 20190215, end: 20190721
  7. TEDUGLUTIDE [Suspect]
     Active Substance: TEDUGLUTIDE
     Dosage: 3.700 MILLIGRAM, QD
     Route: 042
     Dates: start: 20190215, end: 20190721
  8. TEDUGLUTIDE [Suspect]
     Active Substance: TEDUGLUTIDE
     Dosage: 3.700 MILLIGRAM, QD
     Route: 042
     Dates: start: 20190215, end: 20190721
  9. TEDUGLUTIDE [Suspect]
     Active Substance: TEDUGLUTIDE
     Dosage: 4.400 MILLIGRAM, QD
     Route: 042
     Dates: start: 20190722
  10. TEDUGLUTIDE [Suspect]
     Active Substance: TEDUGLUTIDE
     Dosage: 4.400 MILLIGRAM, QD
     Route: 042
     Dates: start: 20190722
  11. TEDUGLUTIDE [Suspect]
     Active Substance: TEDUGLUTIDE
     Dosage: 4.400 MILLIGRAM, QD
     Route: 042
     Dates: start: 20190722
  12. TEDUGLUTIDE [Suspect]
     Active Substance: TEDUGLUTIDE
     Dosage: 4.400 MILLIGRAM, QD
     Route: 042
     Dates: start: 20190722
  13. SILDENAFIL CITRATE [Concomitant]
     Active Substance: SILDENAFIL CITRATE
     Indication: Hypertension
     Dosage: 20 MILLIGRAM, QD
     Route: 048
     Dates: start: 20201005
  14. SILDENAFIL CITRATE [Concomitant]
     Active Substance: SILDENAFIL CITRATE
     Dosage: UNK
  15. SACUBITRIL\VALSARTAN [Concomitant]
     Active Substance: SACUBITRIL\VALSARTAN
     Indication: Arrhythmia supraventricular
     Dosage: 24.26 MILLIGRAM, QD
     Route: 048
     Dates: start: 20210205
  16. ENOXAPARIN [Concomitant]
     Active Substance: ENOXAPARIN
     Indication: Coagulopathy
     Dosage: 11.20 MILLILITER, QD
     Route: 058
     Dates: start: 20201201
  17. MAGNESIUM CARBONATE [Concomitant]
     Active Substance: MAGNESIUM CARBONATE
     Indication: Hypovitaminosis
     Dosage: 5 MILLILITER, QID
     Route: 048
     Dates: start: 20200707

REACTIONS (1)
  - Vascular device infection [Recovered/Resolved]

NARRATIVE: CASE EVENT DATE: 20201123
